FAERS Safety Report 6373254-2 (Version None)
Quarter: 2009Q3

REPORT INFORMATION
  Report Type: 
  Country: None (occurrence: None)
  Receive Date: 20090924
  Receipt Date: 20090921
  Transmission Date: 20100115
  Serious: Yes (Other)
  Sender: FDA-Public Use
  Company Number: BR-JNJFOC-20090906102

PATIENT
  Sex: Female

DRUGS (2)
  1. TYLEX [Suspect]
     Indication: COMPLEX REGIONAL PAIN SYNDROME
     Dosage: 500MG ACETAMINOPHEN +30MG CODEINE PHOSPHATE, 2 TABLETS PER DAY
     Route: 065
     Dates: start: 20060101, end: 20090801
  2. GABAPENTIN [Concomitant]
     Indication: COMPLEX REGIONAL PAIN SYNDROME

REACTIONS (1)
  - HEPATIC STEATOSIS [None]
